FAERS Safety Report 20964684 (Version 4)
Quarter: 2022Q3

REPORT INFORMATION
  Report Type: Report from Study
  Country: AU (occurrence: AU)
  Receive Date: 20220615
  Receipt Date: 20220719
  Transmission Date: 20221027
  Serious: Yes (Hospitalization, Other)
  Sender: FDA-Public Use
  Company Number: AU-JNJFOC-20220619345

PATIENT
  Sex: Female

DRUGS (2)
  1. IMBRUVICA [Suspect]
     Active Substance: IBRUTINIB
     Indication: Non-Hodgkin^s lymphoma
     Route: 048
     Dates: start: 20211101
  2. GLUCOSAMINE [Concomitant]
     Active Substance: GLUCOSAMINE
     Indication: Arthritis
     Route: 048

REACTIONS (7)
  - Peripheral artery occlusion [Recovering/Resolving]
  - Skin cancer [Recovering/Resolving]
  - Influenza [Recovered/Resolved]
  - Poor peripheral circulation [Not Recovered/Not Resolved]
  - Eczema [Not Recovered/Not Resolved]
  - Solar lentigo [Unknown]
  - Peripheral swelling [Not Recovered/Not Resolved]
